FAERS Safety Report 24591340 (Version 1)
Quarter: 2024Q4

REPORT INFORMATION
  Report Type: Spontaneous
  Country: GB (occurrence: GB)
  Receive Date: 20241108
  Receipt Date: 20241108
  Transmission Date: 20250115
  Serious: Yes (Death, Other)
  Sender: SANOFI AVENTIS
  Company Number: GB-SA-SAC20231219001271

PATIENT
  Age: 75 Year
  Sex: Male

DRUGS (1)
  1. KEVZARA [Suspect]
     Active Substance: SARILUMAB
     Indication: Vasculitis
     Dosage: 200 MG, QOW
     Route: 058
     Dates: start: 202202

REACTIONS (5)
  - Death [Fatal]
  - Lower respiratory tract infection [Unknown]
  - Dry eye [Unknown]
  - Rhinorrhoea [Unknown]
  - Product use in unapproved indication [Unknown]
